FAERS Safety Report 23405324 (Version 2)
Quarter: 2024Q3

REPORT INFORMATION
  Report Type: Spontaneous
  Country: CA (occurrence: CA)
  Receive Date: 20240116
  Receipt Date: 20240724
  Transmission Date: 20241016
  Serious: Yes (Other)
  Sender: GRIFOLS
  Company Number: CA-IGSA-BIG0027126

PATIENT
  Age: 74 Year
  Sex: Male
  Weight: 105 kg

DRUGS (12)
  1. PLASBUMIN-5 [Suspect]
     Active Substance: ALBUMIN HUMAN
     Indication: Hypovolaemia
     Dosage: 500 MILLILITER, TOTAL
     Route: 042
     Dates: start: 20240102, end: 20240102
  2. PRECEDEX [Concomitant]
     Active Substance: DEXMEDETOMIDINE HYDROCHLORIDE
     Dosage: 1.2 MCG/KG/HR
     Dates: start: 20240102
  3. LEVOPHED [Concomitant]
     Active Substance: NOREPINEPHRINE BITARTRATE
     Dosage: 6 MCG/MIN
     Dates: start: 20240102
  4. MILRINONE [Concomitant]
     Active Substance: MILRINONE
     Dosage: 0.125 MCG/KG/MIN
     Dates: start: 20240102
  5. ELECTROLYTES NOS [Concomitant]
     Active Substance: ELECTROLYTES NOS
     Dosage: 1 LITER, TOTAL
     Dates: start: 20240102
  6. HUMAN RED BLOOD CELL [Concomitant]
     Active Substance: HUMAN RED BLOOD CELL
     Dosage: 1 UNKNOWN, TOTAL
     Route: 042
     Dates: start: 20240102
  7. INSULIN NOS [Concomitant]
     Active Substance: INSULIN NOS
     Dosage: 15-30, UNITS/H
     Route: 042
     Dates: start: 20240102
  8. BENZOIC ACID [Concomitant]
     Active Substance: BENZOIC ACID
  9. SODIUM BENZOATE [Concomitant]
     Active Substance: SODIUM BENZOATE
  10. SODIUM SACCHARINATE [Concomitant]
  11. PROPYLENE GLYCOL [Concomitant]
     Active Substance: PROPYLENE GLYCOL
  12. CHLORHEXIDINE [Concomitant]
     Active Substance: CHLORHEXIDINE

REACTIONS (4)
  - Hypotensive transfusion reaction [Recovered/Resolved]
  - Ventricular tachycardia [Recovered/Resolved]
  - Ventricular fibrillation [Recovered/Resolved]
  - Supraventricular tachycardia [Recovered/Resolved]

NARRATIVE: CASE EVENT DATE: 20240102
